FAERS Safety Report 15783320 (Version 1)
Quarter: 2019Q1

REPORT INFORMATION
  Report Type: Report from Study
  Country: US (occurrence: US)
  Receive Date: 20190102
  Receipt Date: 20190102
  Transmission Date: 20190417
  Serious: Yes (Hospitalization)
  Sender: FDA-Public Use
  Company Number: US-GILEAD-2018-0382747

PATIENT
  Age: 36 Year
  Sex: Male

DRUGS (8)
  1. DIGOX [DIGOXIN] [Concomitant]
  2. REMODULIN [Concomitant]
     Active Substance: TREPROSTINIL
  3. TYLENOL [Concomitant]
     Active Substance: ACETAMINOPHEN
  4. WARFARIN [Concomitant]
     Active Substance: WARFARIN
  5. FUROSEMIDE. [Concomitant]
     Active Substance: FUROSEMIDE
  6. SILDENAFIL. [Concomitant]
     Active Substance: SILDENAFIL
  7. AMBRISENTAN [Suspect]
     Active Substance: AMBRISENTAN
     Indication: PULMONARY ARTERIAL HYPERTENSION
     Dosage: 10 MG, QD
     Route: 065
  8. CARVEDILOL. [Concomitant]
     Active Substance: CARVEDILOL

REACTIONS (3)
  - Migraine [Not Recovered/Not Resolved]
  - Vomiting [Not Recovered/Not Resolved]
  - Bloody discharge [Not Recovered/Not Resolved]

NARRATIVE: CASE EVENT DATE: 201812
